FAERS Safety Report 13762970 (Version 1)
Quarter: 2017Q3

REPORT INFORMATION
  Report Type: Spontaneous
  Country: US (occurrence: US)
  Receive Date: 20170718
  Receipt Date: 20170718
  Transmission Date: 20171127
  Serious: No
  Sender: FDA-Public Use
  Company Number: None

PATIENT
  Age: 65 Year
  Sex: Male

DRUGS (9)
  1. AZOPT [Concomitant]
     Active Substance: BRINZOLAMIDE
  2. LOVASTATIN. [Concomitant]
     Active Substance: LOVASTATIN
  3. METFORMIN [Concomitant]
     Active Substance: METFORMIN HYDROCHLORIDE
  4. BYDUREON [Suspect]
     Active Substance: EXENATIDE
     Indication: DIABETES MELLITUS
     Dosage: ?          OTHER STRENGTH:MG/MG;QUANTITY:1 INJECTION(S);OTHER FREQUENCY:WEEKLY;?
     Route: 058
     Dates: start: 20170313, end: 20170524
  5. AMLODIPINE [Concomitant]
     Active Substance: AMLODIPINE BESYLATE
  6. LISINOPRIL. [Concomitant]
     Active Substance: LISINOPRIL
  7. ASA [Concomitant]
     Active Substance: ASPIRIN
  8. GLYPIZIDE [Concomitant]
     Active Substance: GLIPIZIDE
  9. TIMOLOL. [Concomitant]
     Active Substance: TIMOLOL

REACTIONS (1)
  - Injection site nodule [None]

NARRATIVE: CASE EVENT DATE: 20170313
